FAERS Safety Report 9688152 (Version 1)
Quarter: 2013Q4

REPORT INFORMATION
  Report Type: Spontaneous
  Country: US (occurrence: None)
  Receive Date: 20131113
  Receipt Date: 20131113
  Transmission Date: 20140711
  Serious: Yes (Hospitalization)
  Sender: FDA-Public Use
  Company Number: None

PATIENT
  Age: 38 Year
  Sex: Female
  Weight: 62.6 kg

DRUGS (1)
  1. METHERGINE [Suspect]
     Indication: INJECTION
     Dosage: INJECTION IN HIP AREA DURING ER VISIT

REACTIONS (4)
  - Nausea [None]
  - Grand mal convulsion [None]
  - Postictal state [None]
  - Haemorrhage [None]
